FAERS Safety Report 7403173-1 (Version None)
Quarter: 2011Q2

REPORT INFORMATION
  Report Type: 
  Country: None (occurrence: None)
  Receive Date: 20110408
  Receipt Date: 20110325
  Transmission Date: 20111010
  Serious: Yes (Life-Threatening, Other)
  Sender: FDA-Public Use
  Company Number: RO-CUBIST-2011S1000232

PATIENT
  Age: 43 Year
  Sex: Female

DRUGS (1)
  1. CUBICIN [Suspect]
     Indication: SKIN INFECTION
     Route: 042

REACTIONS (3)
  - MYOGLOBIN BLOOD INCREASED [None]
  - N-TERMINAL PROHORMONE BRAIN NATRIURETIC PEPTIDE [None]
  - MYOCARDIAL ISCHAEMIA [None]
